FAERS Safety Report 15877782 (Version 1)
Quarter: 2019Q1

REPORT INFORMATION
  Report Type: Report from Study
  Country: US (occurrence: US)
  Receive Date: 20190128
  Receipt Date: 20190128
  Transmission Date: 20190417
  Serious: Yes (Other)
  Sender: FDA-Public Use
  Company Number: US-GILEAD-2019-0386636

PATIENT
  Age: 54 Year
  Sex: Female

DRUGS (2)
  1. TADALAFIL. [Suspect]
     Active Substance: TADALAFIL
     Indication: PRODUCT USED FOR UNKNOWN INDICATION
     Dosage: UNK
     Route: 065
  2. AMBRISENTAN [Suspect]
     Active Substance: AMBRISENTAN
     Indication: PULMONARY HYPERTENSION
     Dosage: 10 MG, QD
     Route: 065
     Dates: start: 20180412

REACTIONS (9)
  - Sjogren^s syndrome [Recovering/Resolving]
  - Dyspnoea [Recovering/Resolving]
  - Pericarditis [Recovering/Resolving]
  - Arthralgia [Recovering/Resolving]
  - Myalgia [Recovering/Resolving]
  - Headache [Recovering/Resolving]
  - Fibromyalgia [Recovering/Resolving]
  - Systemic lupus erythematosus [Recovering/Resolving]
  - Raynaud^s phenomenon [Recovering/Resolving]
